FAERS Safety Report 5534629-4 (Version None)
Quarter: 2007Q4

REPORT INFORMATION
  Report Type: 
  Country: None (occurrence: None)
  Receive Date: 20071205
  Receipt Date: 20071127
  Transmission Date: 20080405
  Serious: Yes (Hospitalization)
  Sender: FDA-Public Use
  Company Number: US-ASTRAZENECA-2007UW21599

PATIENT
  Age: 80 Year
  Sex: Male

DRUGS (5)
  1. SEROQUEL [Suspect]
     Indication: AGITATION
     Route: 048
     Dates: start: 20070808, end: 20070811
  2. SEROQUEL [Suspect]
     Indication: PALLIATIVE CARE
     Route: 048
     Dates: start: 20070808, end: 20070811
  3. SEROQUEL [Suspect]
     Indication: PSYCHOTIC DISORDER
     Route: 048
     Dates: start: 20070808, end: 20070811
  4. REGLAN [Concomitant]
  5. XANAX [Concomitant]
     Indication: AGITATION
     Route: 048

REACTIONS (2)
  - HEPATITIS ACUTE [None]
  - JAUNDICE [None]
